FAERS Safety Report 14340328 (Version 1)
Quarter: 2018Q1

REPORT INFORMATION
  Report Type: Report from Study
  Country: FI (occurrence: FI)
  Receive Date: 20180101
  Receipt Date: 20180101
  Transmission Date: 20180509
  Serious: Yes (Hospitalization)
  Sender: FDA-Public Use
  Company Number: FI-ROCHE-2044237

PATIENT
  Age: 74 Year
  Sex: Female

DRUGS (2)
  1. OXALIPLATIN. [Suspect]
     Active Substance: OXALIPLATIN
     Indication: COLON NEOPLASM
     Dosage: 7 TREATMENTS
     Route: 065
     Dates: start: 201704, end: 201709
  2. CAPECITABINE. [Suspect]
     Active Substance: CAPECITABINE
     Indication: COLON NEOPLASM
     Dosage: 7 TREATMENTS
     Route: 065
     Dates: start: 201704, end: 201709

REACTIONS (1)
  - Oophoritis [Unknown]

NARRATIVE: CASE EVENT DATE: 201711
